FAERS Safety Report 10648044 (Version 1)
Quarter: 2014Q4

REPORT INFORMATION
  Report Type: Spontaneous
  Country: PT (occurrence: None)
  Receive Date: 20141211
  Receipt Date: 20141211
  Transmission Date: 20150529
  Serious: No
  Sender: FDA-Public Use
  Company Number: None

PATIENT

DRUGS (1)
  1. LIVALO [Suspect]
     Active Substance: PITAVASTATIN CALCIUM

REACTIONS (14)
  - Cognitive disorder [None]
  - Cough [None]
  - Decreased appetite [None]
  - Myopathy [None]
  - Rhinitis [None]
  - Amnesia [None]
  - Memory impairment [None]
  - Malaise [None]
  - Fatigue [None]
  - Confusional state [None]
  - Dizziness [None]
  - Anaemia [None]
  - Constipation [None]
  - Somnolence [None]
